FAERS Safety Report 6638290-7 (Version None)
Quarter: 2010Q1

REPORT INFORMATION
  Report Type: 
  Country: None (occurrence: None)
  Receive Date: 20100317
  Receipt Date: 20100309
  Transmission Date: 20100710
  Serious: Yes (Hospitalization)
  Sender: FDA-Public Use
  Company Number: FR-ROCHE-690651

PATIENT
  Sex: Female

DRUGS (2)
  1. AVASTIN [Suspect]
     Indication: BREAST CANCER RECURRENT
     Route: 042
     Dates: start: 20100219, end: 20100226
  2. TAXOL [Suspect]
     Indication: BREAST CANCER RECURRENT
     Route: 042
     Dates: start: 20100219, end: 20100226

REACTIONS (1)
  - FEBRILE BONE MARROW APLASIA [None]
